FAERS Safety Report 18728472 (Version 2)
Quarter: 2021Q1

REPORT INFORMATION
  Report Type: Spontaneous
  Country: US (occurrence: US)
  Receive Date: 20210112
  Receipt Date: 20210202
  Transmission Date: 20210419
  Serious: Yes (Life-Threatening, Hospitalization, Other)
  Sender: FDA-Public Use
  Company Number: US-LUPIN PHARMACEUTICALS INC.-2020-11678

PATIENT
  Age: 26 Year
  Sex: Male

DRUGS (1)
  1. QUETIAPINE. [Suspect]
     Active Substance: QUETIAPINE
     Indication: PRODUCT USED FOR UNKNOWN INDICATION
     Dosage: 18000 MILLIGRAM (FULL BOTTLE OF SEROQUEL PILLS (CALCULATED TO BE APPROXIMATELY 18000MG) )
     Route: 065

REACTIONS (3)
  - Intentional overdose [Unknown]
  - Toxicity to various agents [Unknown]
  - Seizure like phenomena [Unknown]

NARRATIVE: CASE EVENT DATE: 20170404
